FAERS Safety Report 14428267 (Version 1)
Quarter: 2018Q1

REPORT INFORMATION
  Report Type: Report from Study
  Country: US (occurrence: US)
  Receive Date: 20180123
  Receipt Date: 20180123
  Transmission Date: 20180509
  Serious: No
  Sender: FDA-Public Use
  Company Number: US-AMGEN-USASL2017142358

PATIENT
  Age: 52 Year
  Sex: Male

DRUGS (2)
  1. REPATHA [Suspect]
     Active Substance: EVOLOCUMAB
     Indication: HYPERCHOLESTEROLAEMIA
  2. REPATHA [Suspect]
     Active Substance: EVOLOCUMAB
     Indication: LOW DENSITY LIPOPROTEIN INCREASED
     Dosage: 140 MG, Q2WK
     Route: 065
     Dates: start: 201707

REACTIONS (6)
  - Haemoglobin increased [Unknown]
  - Erythema [Not Recovered/Not Resolved]
  - Abdominal distension [Unknown]
  - Haematocrit increased [Unknown]
  - Fatigue [Unknown]
  - Polycythaemia [Unknown]

NARRATIVE: CASE EVENT DATE: 2017
